FAERS Safety Report 8144242-0 (Version None)
Quarter: 2012Q1

REPORT INFORMATION
  Report Type: 
  Country: None (occurrence: None)
  Receive Date: 20120217
  Receipt Date: 20120206
  Transmission Date: 20120608
  Serious: Yes (Death)
  Sender: FDA-Public Use
  Company Number: FR-NOVOPROD-256913

PATIENT
  Age: 31 Year
  Sex: Female
  Weight: 80 kg

DRUGS (2)
  1. NOVOSEVEN [Suspect]
     Dosage: 4.8 MG, SINGLE
     Route: 042
     Dates: start: 20060909, end: 20060909
  2. NOVOSEVEN [Suspect]
     Indication: ANAPHYLACTOID SYNDROME OF PREGNANCY
     Dosage: 4.8 MG, SINGLE
     Route: 042
     Dates: start: 20060909, end: 20060909

REACTIONS (1)
  - ANAPHYLACTOID SYNDROME OF PREGNANCY [None]
